FAERS Safety Report 18430549 (Version 1)
Quarter: 2020Q4

REPORT INFORMATION
  Report Type: Spontaneous
  Country: GB (occurrence: GB)
  Receive Date: 20201027
  Receipt Date: 20201027
  Transmission Date: 20210114
  Serious: Yes (Other)
  Sender: FDA-Public Use
  Company Number: GB-ACCORD-206278

PATIENT
  Age: 90 Year
  Sex: Male
  Weight: 93 kg

DRUGS (16)
  1. HYPROMELLOSE/HYPROMELLOSE PHTHALATE [Concomitant]
     Dates: start: 20200120
  2. BUMETANIDE. [Concomitant]
     Active Substance: BUMETANIDE
     Dosage: 2 MORNING 1 LUNCHTIME
     Dates: start: 20200531
  3. LORATADINE. [Concomitant]
     Active Substance: LORATADINE
     Dosage: AS DIRECTED
     Dates: start: 20201002
  4. PULMICORT TURBUHALER [Concomitant]
     Active Substance: BUDESONIDE
     Route: 055
     Dates: start: 20200120
  5. COLECALCIFEROL [Concomitant]
     Active Substance: CHOLECALCIFEROL
     Dates: start: 20200922
  6. FUROSEMIDE. [Suspect]
     Active Substance: FUROSEMIDE
     Indication: PRODUCT USED FOR UNKNOWN INDICATION
     Dates: start: 20201002
  7. WARFARIN [Concomitant]
     Active Substance: WARFARIN
     Dosage: TAKE AS DIRECTED IN YELLOW BOOK
     Dates: start: 20200217
  8. TAMSULOSIN [Concomitant]
     Active Substance: TAMSULOSIN
     Dates: start: 20200531
  9. SIMVASTATIN. [Concomitant]
     Active Substance: SIMVASTATIN
     Dosage: NIGHT
     Dates: start: 20200531
  10. IRON [Concomitant]
     Active Substance: IRON
     Dates: start: 20200922
  11. BISOPROLOL [Concomitant]
     Active Substance: BISOPROLOL
     Dosage: MORNING
     Dates: start: 20200531
  12. CANDESARTAN. [Concomitant]
     Active Substance: CANDESARTAN
     Dates: start: 20200531
  13. VENTOLIN [Concomitant]
     Active Substance: ALBUTEROL SULFATE
     Route: 055
     Dates: start: 20200120
  14. AMLODIPINE [Concomitant]
     Active Substance: AMLODIPINE BESYLATE
     Dates: start: 20200531
  15. PARACETAMOL [Concomitant]
     Active Substance: ACETAMINOPHEN
     Dosage: 1 TO 2 UP TO FOUR TIMES DAILY
     Dates: start: 20200120
  16. FINASTERIDE. [Concomitant]
     Active Substance: FINASTERIDE
     Dates: start: 20200531

REACTIONS (1)
  - Anaphylactic reaction [Recovering/Resolving]

NARRATIVE: CASE EVENT DATE: 20201002
